FAERS Safety Report 7326642-1 (Version None)
Quarter: 2011Q1

REPORT INFORMATION
  Report Type: 
  Country: None (occurrence: None)
  Receive Date: 20110302
  Receipt Date: 20110217
  Transmission Date: 20110831
  Serious: Yes (Other)
  Sender: FDA-Public Use
  Company Number: JP-ACTELION-A-CH2011-45549

PATIENT
  Age: 43 Year
  Sex: Female

DRUGS (2)
  1. TRACLEER [Suspect]
     Indication: PULMONARY HYPERTENSION
     Dosage: UNK
     Route: 048
  2. PROSTAGLANDIN I2 [Concomitant]

REACTIONS (9)
  - PLEURAL EFFUSION [None]
  - BLOOD CORTISOL DECREASED [None]
  - BLOOD CORTICOTROPHIN DECREASED [None]
  - DECREASED APPETITE [None]
  - OEDEMA [None]
  - ISOLATED ADRENOCORTICOTROPIC HORMONE DEFICIENCY [None]
  - HYPONATRAEMIA [None]
  - FATIGUE [None]
  - WEIGHT DECREASED [None]
